FAERS Safety Report 8141380-3 (Version None)
Quarter: 2012Q1

REPORT INFORMATION
  Report Type: 
  Country: None (occurrence: None)
  Receive Date: 20120216
  Receipt Date: 20120209
  Transmission Date: 20120608
  Serious: No
  Sender: FDA-Public Use
  Company Number: PHEH2012US003549

PATIENT
  Age: 57 Year

DRUGS (2)
  1. TASIGNA [Suspect]
     Dosage: UNK UKN, UNK
  2. GLEEVEC [Suspect]
     Dosage: UNK UKN, UNK

REACTIONS (1)
  - BLOOD CREATINE PHOSPHOKINASE INCREASED [None]
